FAERS Safety Report 9832801 (Version 2)
Quarter: 2014Q1

REPORT INFORMATION
  Report Type: Report from Study
  Country: IE (occurrence: IE)
  Receive Date: 20140121
  Receipt Date: 20140127
  Transmission Date: 20141002
  Serious: Yes (Hospitalization)
  Sender: FDA-Public Use
  Company Number: IE-GLAXOSMITHKLINE-B0960891B

PATIENT
  Age: 66 Year
  Sex: Female
  Weight: 49 kg

DRUGS (11)
  1. LAPATINIB [Suspect]
     Indication: BREAST CANCER METASTATIC
     Dosage: 1000MG PER DAY
     Route: 048
     Dates: start: 20131120
  2. TAXOL [Suspect]
     Indication: BREAST CANCER METASTATIC
     Route: 042
     Dates: start: 20131120
  3. HERCEPTIN [Suspect]
     Indication: BREAST CANCER METASTATIC
     Route: 042
     Dates: start: 20131120
  4. ASPIRIN [Concomitant]
     Dates: start: 2005
  5. LANSOPRAZOLE [Concomitant]
     Dates: start: 2013
  6. MYCOSTATIN [Concomitant]
     Indication: PROPHYLAXIS
     Dosage: 4ML PER DAY
     Dates: start: 20131120
  7. GLUCOPHAGE [Concomitant]
     Dates: start: 2005
  8. LOPERAMIDE [Concomitant]
     Dates: start: 20131120
  9. MAXOLON [Concomitant]
     Indication: VOMITING
     Dosage: 60MG PER DAY
     Dates: start: 20131120
  10. OXYCONTIN [Concomitant]
     Indication: PAIN
     Dates: start: 201310
  11. OXYNORM [Concomitant]
     Dates: start: 201310

REACTIONS (2)
  - Diarrhoea [Recovered/Resolved]
  - Hypokalaemia [Recovered/Resolved]
